FAERS Safety Report 19171789 (Version 1)
Quarter: 2021Q2

REPORT INFORMATION
  Report Type: Spontaneous
  Country: US (occurrence: US)
  Receive Date: 20210423
  Receipt Date: 20210423
  Transmission Date: 20210717
  Serious: No
  Sender: FDA-Public Use
  Company Number: US-ELI_LILLY_AND_COMPANY-US202104007618

PATIENT
  Age: 66 Year
  Sex: Female

DRUGS (9)
  1. FIASP [Concomitant]
     Active Substance: INSULIN ASPART
     Indication: PRODUCT USED FOR UNKNOWN INDICATION
     Dosage: 15 U, OTHER (11?15 UNITS AT UNKNOWN FREQUENCY)
  2. BASAGLAR [Suspect]
     Active Substance: INSULIN GLARGINE
     Dosage: 10 U, UNKNOWN
     Route: 065
     Dates: start: 20210316
  3. BASAGLAR [Suspect]
     Active Substance: INSULIN GLARGINE
     Dosage: 10 U, UNKNOWN
     Route: 065
     Dates: start: 20210316
  4. BASAGLAR [Suspect]
     Active Substance: INSULIN GLARGINE
     Indication: TYPE 2 DIABETES MELLITUS
     Dosage: 12 U, UNKNOWN
     Route: 065
     Dates: start: 202010
  5. ALBUTEROL [SALBUTAMOL] [Concomitant]
     Active Substance: ALBUTEROL
     Indication: ASTHMA
  6. FLOVENT [Concomitant]
     Active Substance: FLUTICASONE PROPIONATE
     Indication: ASTHMA
  7. JANUVIA [Concomitant]
     Active Substance: SITAGLIPTIN PHOSPHATE
     Indication: PRODUCT USED FOR UNKNOWN INDICATION
  8. METFORMIN [Concomitant]
     Active Substance: METFORMIN HYDROCHLORIDE
     Indication: PRODUCT USED FOR UNKNOWN INDICATION
  9. BASAGLAR [Suspect]
     Active Substance: INSULIN GLARGINE
     Indication: TYPE 2 DIABETES MELLITUS
     Dosage: 12 U, UNKNOWN
     Route: 065
     Dates: start: 202010

REACTIONS (14)
  - Malaise [Unknown]
  - Dry eye [Unknown]
  - Blood glucose decreased [Unknown]
  - Pain [Unknown]
  - Blood glucose increased [Unknown]
  - Chills [Unknown]
  - Lymphadenopathy [Unknown]
  - Pain in extremity [Unknown]
  - Poor quality sleep [Unknown]
  - Asthma [Unknown]
  - Fatigue [Unknown]
  - Insulin resistance [Unknown]
  - Immune system disorder [Unknown]
  - Headache [Unknown]

NARRATIVE: CASE EVENT DATE: 202101
